FAERS Safety Report 9394472 (Version 4)
Quarter: 2013Q3

REPORT INFORMATION
  Report Type: Spontaneous
  Country: US (occurrence: US)
  Receive Date: 20130711
  Receipt Date: 20130807
  Transmission Date: 20140515
  Serious: No
  Sender: FDA-Public Use
  Company Number: US-PFIZER INC-2013203683

PATIENT
  Age: 57 Year
  Sex: Female
  Weight: 97 kg

DRUGS (6)
  1. LYRICA [Suspect]
     Indication: FIBROMYALGIA
     Dosage: 150 MG, 3X/DAY
     Dates: start: 2009
  2. LYRICA [Suspect]
     Dosage: 150 MG, 2X/DAY
     Dates: end: 201306
  3. VALIUM [Concomitant]
     Dosage: 10 MG DAILY
  4. METFORMIN [Concomitant]
     Indication: DIABETES MELLITUS
     Dosage: 500 MG DAILY
  5. LISINOPRIL [Concomitant]
     Indication: BLOOD PRESSURE ABNORMAL
     Dosage: 10 MG DAILY
  6. VIIBRYD [Concomitant]
     Indication: DEPRESSION
     Dosage: 40 MG DAILY

REACTIONS (4)
  - Musculoskeletal stiffness [Not Recovered/Not Resolved]
  - Movement disorder [Not Recovered/Not Resolved]
  - Pain [Not Recovered/Not Resolved]
  - Hypokinesia [Unknown]
